FAERS Safety Report 5815498-1 (Version None)
Quarter: 2008Q3

REPORT INFORMATION
  Report Type: 
  Country: None (occurrence: None)
  Receive Date: 20080718
  Receipt Date: 20080708
  Transmission Date: 20090109
  Serious: Yes (Death, Other)
  Sender: FDA-Public Use
  Company Number: US-PFIZER INC-2008057398

PATIENT
  Sex: Male

DRUGS (3)
  1. CHANTIX [Suspect]
     Indication: SMOKING CESSATION THERAPY
  2. LIPITOR [Concomitant]
  3. OMACOR [Concomitant]
     Indication: BLOOD TRIGLYCERIDES INCREASED

REACTIONS (9)
  - ABNORMAL DREAMS [None]
  - ANGER [None]
  - DEPRESSED MOOD [None]
  - DEPRESSION [None]
  - MYOCARDIAL INFARCTION [None]
  - NIGHTMARE [None]
  - PALPITATIONS [None]
  - THROMBOSIS [None]
  - WEIGHT DECREASED [None]
